FAERS Safety Report 12395157 (Version 1)
Quarter: 2016Q2

REPORT INFORMATION
  Report Type: Spontaneous
  Country: US (occurrence: US)
  Receive Date: 20160523
  Receipt Date: 20160523
  Transmission Date: 20160815
  Serious: No
  Sender: FDA-Public Use
  Company Number: US-ALLERGAN-1522679US

PATIENT
  Sex: Female

DRUGS (2)
  1. REFRESH P.M. [Suspect]
     Active Substance: MINERAL OIL\PETROLATUM
     Indication: EYE IRRITATION
     Dosage: UNK
     Route: 047
     Dates: start: 20150911
  2. FML FORTE [Suspect]
     Active Substance: FLUOROMETHOLONE
     Indication: EYE IRRITATION
     Dosage: UNK
     Dates: start: 20150911

REACTIONS (5)
  - Hordeolum [Recovering/Resolving]
  - Mycobacterium abscessus infection [Recovering/Resolving]
  - Propionibacterium test positive [Recovering/Resolving]
  - Eyelid infection [Recovering/Resolving]
  - Eye disorder [Unknown]

NARRATIVE: CASE EVENT DATE: 20150928
